FAERS Safety Report 11964433 (Version 1)
Quarter: 2016Q1

REPORT INFORMATION
  Report Type: Spontaneous
  Country: US (occurrence: None)
  Receive Date: 20160122
  Receipt Date: 20160122
  Transmission Date: 20160526
  Serious: Yes (Hospitalization)
  Sender: FDA-Public Use
  Company Number: None

PATIENT
  Age: 50 Year
  Sex: Female
  Weight: 99.79 kg

DRUGS (3)
  1. FLAGYL [Concomitant]
     Active Substance: METRONIDAZOLE\METRONIDAZOLE HYDROCHLORIDE
  2. CLINDAMYCIN [Suspect]
     Active Substance: CLINDAMYCIN\CLINDAMYCIN PHOSPHATE
     Indication: EAR INFECTION
     Dosage: 3 PILLS THREE TIMES DAILY TAKEN BY MOUTH
     Route: 048
     Dates: start: 20151230, end: 20160107
  3. ADVIL [Concomitant]
     Active Substance: IBUPROFEN

REACTIONS (10)
  - Rash [None]
  - Dyspepsia [None]
  - Asthenia [None]
  - Diarrhoea [None]
  - Chills [None]
  - Muscle spasms [None]
  - Malaise [None]
  - Pyrexia [None]
  - Vomiting [None]
  - Middle insomnia [None]

NARRATIVE: CASE EVENT DATE: 20160111
